FAERS Safety Report 13763949 (Version 7)
Quarter: 2018Q2

REPORT INFORMATION
  Report Type: Spontaneous
  Country: KR (occurrence: KR)
  Receive Date: 20170718
  Receipt Date: 20180420
  Transmission Date: 20180711
  Serious: Yes (Hospitalization, Other)
  Sender: FDA-Public Use
  Company Number: KR-PFIZER INC-2017301469

PATIENT
  Age: 53 Year
  Sex: Female

DRUGS (4)
  1. DUAVIVE [Suspect]
     Active Substance: BAZEDOXIFENE ACETATE\ESTROGENS, CONJUGATED
     Dosage: 1 DF, 1X/DAY
     Route: 048
     Dates: start: 201710
  2. DUAVIVE [Suspect]
     Active Substance: BAZEDOXIFENE ACETATE\ESTROGENS, CONJUGATED
     Dosage: 1 DF, 1X/DAY
     Route: 048
     Dates: start: 20170628
  3. DUAVIVE [Suspect]
     Active Substance: BAZEDOXIFENE ACETATE\ESTROGENS, CONJUGATED
     Indication: MENOPAUSAL SYMPTOMS
     Dosage: 1 DF, 1X/DAY
     Route: 048
     Dates: start: 20170526
  4. DUAVIVE [Suspect]
     Active Substance: BAZEDOXIFENE ACETATE\ESTROGENS, CONJUGATED
     Dosage: 1 DF, 1X/DAY
     Route: 048
     Dates: start: 201712

REACTIONS (16)
  - Headache [Not Recovered/Not Resolved]
  - Paralysis [Recovered/Resolved]
  - Trigeminal neuralgia [Not Recovered/Not Resolved]
  - Migraine [Not Recovered/Not Resolved]
  - Sleep disorder [Recovered/Resolved]
  - Toothache [Unknown]
  - Nausea [Unknown]
  - Depression [Unknown]
  - Hemiplegia [Recovered/Resolved]
  - Eye pain [Not Recovered/Not Resolved]
  - Loss of personal independence in daily activities [Unknown]
  - Facial paralysis [Recovered/Resolved]
  - Tension headache [Not Recovered/Not Resolved]
  - Facial pain [Not Recovered/Not Resolved]
  - Somnolence [Recovered/Resolved]
  - Vomiting [Recovered/Resolved]

NARRATIVE: CASE EVENT DATE: 201705
